FAERS Safety Report 23331242 (Version 1)
Quarter: 2023Q4

REPORT INFORMATION
  Report Type: Spontaneous
  Country: US (occurrence: None)
  Receive Date: 20231221
  Receipt Date: 20231221
  Transmission Date: 20240110
  Serious: Yes (Disabling)
  Sender: FDA-Public Use
  Company Number: None

PATIENT
  Age: 56 Year
  Sex: Female
  Weight: 50.85 kg

DRUGS (9)
  1. OTEZLA [Suspect]
     Active Substance: APREMILAST
  2. Buorenorphine [Concomitant]
  3. GRALISE [Concomitant]
     Active Substance: GABAPENTIN
  4. topamaz [Concomitant]
  5. METHOTREXATE [Concomitant]
     Active Substance: METHOTREXATE
  6. LEUCOVORIN [Concomitant]
     Active Substance: LEUCOVORIN\LEUCOVORIN CALCIUM
  7. FOLIC ACID [Concomitant]
     Active Substance: FOLIC ACID
  8. VITAMIN D NOS [Concomitant]
     Active Substance: VITAMIN D NOS
  9. MIRALAX [Concomitant]
     Active Substance: POLYETHYLENE GLYCOL 3350

REACTIONS (9)
  - Nausea [None]
  - Abdominal pain upper [None]
  - Diarrhoea [None]
  - Vomiting [None]
  - Migraine [None]
  - Loss of personal independence in daily activities [None]
  - Weight decreased [None]
  - Decreased appetite [None]
  - Therapy cessation [None]

NARRATIVE: CASE EVENT DATE: 20231113
